FAERS Safety Report 7785581-2 (Version None)
Quarter: 2011Q3

REPORT INFORMATION
  Report Type: 
  Country: None (occurrence: None)
  Receive Date: 20110929
  Receipt Date: 20110914
  Transmission Date: 20111222
  Serious: Yes (Other)
  Sender: FDA-Public Use
  Company Number: US-JNJFOC-20110906578

PATIENT
  Sex: Male

DRUGS (1)
  1. CALADRYL [Suspect]
     Indication: DERMATITIS CONTACT
     Dosage: APPLIED LIBERALLY TO ARM AND ELBOW AREA MORE THAN 4 TIMES PER DAY
     Route: 061

REACTIONS (7)
  - OVERDOSE [None]
  - JOINT SWELLING [None]
  - PAIN OF SKIN [None]
  - SKIN WARM [None]
  - ERYTHEMA [None]
  - PAIN [None]
  - CONDITION AGGRAVATED [None]
